FAERS Safety Report 6336682-7 (Version None)
Quarter: 2009Q3

REPORT INFORMATION
  Report Type: 
  Country: None (occurrence: None)
  Receive Date: 20090901
  Receipt Date: 20090820
  Transmission Date: 20100115
  Serious: Yes (Disabling)
  Sender: FDA-Public Use
  Company Number: CA-MERCK-0903CAN00099

PATIENT

DRUGS (7)
  1. ISENTRESS [Suspect]
     Indication: HIV INFECTION
     Route: 048
     Dates: start: 20081001, end: 20090201
  2. ETRAVIRINE [Suspect]
     Route: 048
     Dates: start: 20081001, end: 20090201
  3. CELSENTRI [Suspect]
     Route: 048
     Dates: start: 20081001, end: 20090201
  4. DARUNAVIR [Suspect]
     Route: 048
     Dates: start: 20081001, end: 20090201
  5. COMBIVIR [Suspect]
     Route: 048
  6. RITONAVIR [Suspect]
     Route: 048
  7. CHAMPIX [Concomitant]
     Route: 065

REACTIONS (2)
  - BLOOD CREATINE PHOSPHOKINASE INCREASED [None]
  - MYOSITIS [None]
